FAERS Safety Report 17495150 (Version 1)
Quarter: 2020Q1

REPORT INFORMATION
  Report Type: Spontaneous
  Country: RU (occurrence: RU)
  Receive Date: 20200303
  Receipt Date: 20200303
  Transmission Date: 20200409
  Serious: Yes (Death, Other)
  Sender: FDA-Public Use
  Company Number: RU-009507513-1504RUS015762

PATIENT
  Age: 60 Year
  Sex: Male

DRUGS (1)
  1. CUBICIN [Suspect]
     Active Substance: DAPTOMYCIN
     Indication: PNEUMONIA
     Dosage: 500 MILLIGRAM (8.3MG/KG), QD (Q24H)
     Route: 065
     Dates: start: 20101210, end: 20101211

REACTIONS (4)
  - Septic shock [Fatal]
  - Pneumonia necrotising [Fatal]
  - Respiratory failure [Fatal]
  - Sepsis [Fatal]
